FAERS Safety Report 5029250-0 (Version None)
Quarter: 2006Q2

REPORT INFORMATION
  Report Type: 
  Country: None (occurrence: None)
  Receive Date: 20060613
  Receipt Date: 20060530
  Transmission Date: 20061013
  Serious: Yes (Death, Hospitalization)
  Sender: FDA-Public Use
  Company Number: US-2006-010290

PATIENT
  Age: 66 Year
  Sex: Female

DRUGS (6)
  1. BETASERON [Suspect]
     Indication: MULTIPLE SCLEROSIS
     Dosage: UNK, SUBCUTANEOUS
     Route: 058
     Dates: start: 19950316, end: 20051124
  2. REBIF [Concomitant]
  3. TRAZODONE HCL [Concomitant]
  4. PREMARIN [Concomitant]
  5. BACLOFEN [Concomitant]
  6. DITROPAN XL [Concomitant]

REACTIONS (4)
  - DEPRESSED LEVEL OF CONSCIOUSNESS [None]
  - MULTIPLE SCLEROSIS [None]
  - PNEUMONIA [None]
  - PROCEDURAL COMPLICATION [None]
